FAERS Safety Report 5035417-8 (Version None)
Quarter: 2006Q2

REPORT INFORMATION
  Report Type: 
  Country: None (occurrence: None)
  Receive Date: 20060622
  Receipt Date: 20060613
  Transmission Date: 20061013
  Serious: Yes (Death)
  Sender: FDA-Public Use
  Company Number: HQWYE198613JUN06

PATIENT
  Age: 72 Year
  Sex: Female

DRUGS (5)
  1. CORDARONE [Suspect]
     Indication: ATRIAL FIBRILLATION
     Dosage: 750 MG BOLUS + 1.2 G PER DAY
     Route: 042
     Dates: start: 20050728, end: 20050728
  2. CORDARONE [Suspect]
     Indication: ATRIAL FLUTTER
     Dosage: 750 MG BOLUS + 1.2 G PER DAY
     Route: 042
     Dates: start: 20050728, end: 20050728
  3. MAXIPIME [Concomitant]
  4. CLINDAMYCIN HCL [Concomitant]
  5. CIPROFLOXACIN [Concomitant]

REACTIONS (8)
  - ATRIAL FIBRILLATION [None]
  - BRADYCARDIA [None]
  - GASTROINTESTINAL HAEMORRHAGE [None]
  - HAEMODYNAMIC INSTABILITY [None]
  - HYPOTENSION [None]
  - MULTI-ORGAN FAILURE [None]
  - SEPSIS [None]
  - TACHYCARDIA [None]
